FAERS Safety Report 9667924 (Version 7)
Quarter: 2014Q4

REPORT INFORMATION
  Report Type: Spontaneous
  Country: US (occurrence: US)
  Receive Date: 20131104
  Receipt Date: 20141204
  Transmission Date: 20150529
  Serious: Yes (Hospitalization, Other)
  Sender: FDA-Public Use
  Company Number: US-009507513-1311USA000235

PATIENT
  Sex: Female
  Weight: 81.63 kg

DRUGS (3)
  1. PREMPRO [Concomitant]
     Active Substance: ESTROGENS, CONJUGATED\MEDROXYPROGESTERONE ACETATE
     Dosage: UNK
     Dates: start: 1998, end: 2004
  2. BONIVA [Suspect]
     Active Substance: IBANDRONATE SODIUM
     Indication: OSTEOPENIA
     Dosage: UNK
     Route: 048
     Dates: start: 20070502, end: 20111215
  3. FOSAMAX [Suspect]
     Active Substance: ALENDRONATE SODIUM
     Indication: OSTEOPENIA
     Dosage: 70 MG, UNK
     Route: 048
     Dates: start: 20010101, end: 20070501

REACTIONS (38)
  - Removal of internal fixation [Unknown]
  - Fracture nonunion [Recovered/Resolved]
  - Device breakage [Unknown]
  - Infected seroma [Unknown]
  - Irritable bowel syndrome [Unknown]
  - Back pain [Unknown]
  - Femur fracture [Recovered/Resolved]
  - Hypertension [Unknown]
  - Hyperlipidaemia [Unknown]
  - Osteomyelitis [Recovered/Resolved]
  - Hyperhidrosis [Unknown]
  - Tachycardia [Unknown]
  - Debridement [Unknown]
  - Osteoporosis [Unknown]
  - Hypoaesthesia [Unknown]
  - Removal of internal fixation [Unknown]
  - Intervertebral disc protrusion [Unknown]
  - Depression [Unknown]
  - Osteoarthritis [Unknown]
  - Myalgia [Unknown]
  - Internal fixation of fracture [Unknown]
  - Bone graft [Unknown]
  - Femur fracture [Recovered/Resolved]
  - Blood cholesterol increased [Unknown]
  - Haemoglobin decreased [Unknown]
  - Anxiety [Unknown]
  - Anaemia postoperative [Unknown]
  - Migraine [Unknown]
  - Constipation [Unknown]
  - Intramedullary rod insertion [Unknown]
  - Intramedullary rod insertion [Unknown]
  - Intramedullary rod insertion [Unknown]
  - Hypovitaminosis [Unknown]
  - Thyroid function test abnormal [Unknown]
  - Removal of internal fixation [Unknown]
  - Hypertension [Unknown]
  - Blood potassium decreased [Unknown]
  - Weight increased [Unknown]

NARRATIVE: CASE EVENT DATE: 2004
